FAERS Safety Report 8030058-2 (Version None)
Quarter: 2012Q1

REPORT INFORMATION
  Report Type: 
  Country: None (occurrence: None)
  Receive Date: 20120109
  Receipt Date: 20111227
  Transmission Date: 20120608
  Serious: Yes (Death)
  Sender: FDA-Public Use
  Company Number: US-JNJFOC-20111212463

PATIENT
  Age: 18 Year
  Sex: Male

DRUGS (3)
  1. ASPIRIN [Suspect]
     Indication: SUICIDE ATTEMPT
     Route: 048
  2. LORATADINE [Suspect]
     Indication: SUICIDE ATTEMPT
     Route: 048
  3. ACETAMINOPHEN [Concomitant]

REACTIONS (8)
  - HYPERTHERMIA [None]
  - TOXICITY TO VARIOUS AGENTS [None]
  - VENTRICULAR TACHYCARDIA [None]
  - PULMONARY OEDEMA [None]
  - HAEMODIALYSIS [None]
  - CONVULSION [None]
  - COMPLETED SUICIDE [None]
  - BLOOD PH DECREASED [None]
